FAERS Safety Report 12950767 (Version 2)
Quarter: 2017Q1

REPORT INFORMATION
  Report Type: Spontaneous
  Country: CH (occurrence: CH)
  Receive Date: 20161116
  Receipt Date: 20170109
  Transmission Date: 20170428
  Serious: Yes (Hospitalization, Other)
  Sender: FDA-Public Use
  Company Number: CH-AMGEN-CHESP2016160457

PATIENT
  Age: 57 Year
  Sex: Male

DRUGS (1)
  1. ENBREL [Suspect]
     Active Substance: ETANERCEPT
     Indication: RHEUMATOID ARTHRITIS
     Dosage: UNK
     Route: 065
     Dates: start: 201608

REACTIONS (4)
  - Sepsis [Recovered/Resolved]
  - Pulmonary fibrosis [Unknown]
  - Condition aggravated [Unknown]
  - Alveolitis [Recovered/Resolved]

NARRATIVE: CASE EVENT DATE: 20161101
